FAERS Safety Report 24890828 (Version 2)
Quarter: 2025Q3

REPORT INFORMATION
  Report Type: Spontaneous
  Country: CN (occurrence: CN)
  Receive Date: 20250127
  Receipt Date: 20250809
  Transmission Date: 20251020
  Serious: Yes (Hospitalization, Other)
  Sender: ALEXION PHARMACEUTICALS
  Company Number: CN-ASTRAZENECA-202501CHN021665CN

PATIENT
  Age: 49 Year
  Sex: Female
  Weight: 51 kg

DRUGS (3)
  1. FASLODEX [Suspect]
     Active Substance: FULVESTRANT
     Indication: Neoplasm
     Dosage: 500 MILLIGRAM, QD
     Dates: start: 20220401, end: 20241228
  2. FASLODEX [Suspect]
     Active Substance: FULVESTRANT
  3. GOSERELIN [Suspect]
     Active Substance: GOSERELIN
     Indication: Neoplasm
     Dosage: 3.6 MILLIGRAM, QD
     Dates: start: 20220401, end: 20241128

REACTIONS (1)
  - Myelosuppression [Recovering/Resolving]

NARRATIVE: CASE EVENT DATE: 20241228
